FAERS Safety Report 10702959 (Version 1)
Quarter: 2015Q1

REPORT INFORMATION
  Report Type: Spontaneous
  Country: GB (occurrence: GB)
  Receive Date: 20150110
  Receipt Date: 20150110
  Transmission Date: 20150721
  Serious: Yes (Other)
  Sender: FDA-Public Use
  Company Number: GB-MYLANLABS-2015M1000192

PATIENT

DRUGS (1)
  1. SUNITINIB [Suspect]
     Active Substance: SUNITINIB
     Dosage: 50 MG/DAY (4 WEEKS ^ON^, 2 WEEKS ^OFF^ SCHEDULE)
     Route: 065

REACTIONS (4)
  - Metastatic renal cell carcinoma [Not Recovered/Not Resolved]
  - Treatment failure [Unknown]
  - Metastases to central nervous system [Not Recovered/Not Resolved]
  - Disease progression [Not Recovered/Not Resolved]

NARRATIVE: CASE EVENT DATE: 201101
